FAERS Safety Report 9405400 (Version 1)
Quarter: 2013Q3

REPORT INFORMATION
  Report Type: Spontaneous
  Country: US (occurrence: US)
  Receive Date: 20130717
  Receipt Date: 20130717
  Transmission Date: 20140515
  Serious: Yes (Other)
  Sender: FDA-Public Use
  Company Number: US-MERCK-1307USA007235

PATIENT
  Age: 24 Year
  Sex: Female

DRUGS (1)
  1. SAPHRIS [Suspect]
     Dosage: 5 MG, QD

REACTIONS (12)
  - Suicide attempt [Unknown]
  - Convulsion [Unknown]
  - Coma [Unknown]
  - Tachyphrenia [Unknown]
  - Mania [Unknown]
  - Thinking abnormal [Unknown]
  - Hallucination [Unknown]
  - Hypoaesthesia oral [Unknown]
  - Dry mouth [Unknown]
  - Adverse event [Unknown]
  - Inappropriate affect [Unknown]
  - Activities of daily living impaired [Unknown]
